FAERS Safety Report 6065014-7 (Version None)
Quarter: 2009Q1

REPORT INFORMATION
  Report Type: 
  Country: None (occurrence: None)
  Receive Date: 20090204
  Receipt Date: 20090128
  Transmission Date: 20090719
  Serious: Yes (Death, Other)
  Sender: FDA-Public Use
  Company Number: JP-TEVA-184245ISR

PATIENT
  Age: 59 Year
  Sex: Male
  Weight: 47 kg

DRUGS (2)
  1. CISPLATIN [Suspect]
     Indication: METASTATIC GASTRIC CANCER
  2. IRINOTECAN HCL [Suspect]
     Indication: METASTATIC GASTRIC CANCER

REACTIONS (5)
  - PULMONARY TUBERCULOSIS [None]
  - RENAL DISORDER [None]
  - RENAL FAILURE [None]
  - SEPSIS [None]
  - TUMOUR LYSIS SYNDROME [None]
